FAERS Safety Report 20263316 (Version 1)
Quarter: 2021Q4

REPORT INFORMATION
  Report Type: Spontaneous
  Country: DE (occurrence: DE)
  Receive Date: 20211231
  Receipt Date: 20211231
  Transmission Date: 20220303
  Serious: Yes (Other)
  Sender: FDA-Public Use
  Company Number: DE-BRISTOL-MYERS SQUIBB COMPANY-BMS-2021-141470

PATIENT
  Sex: Male

DRUGS (3)
  1. OPDIVO [Suspect]
     Active Substance: NIVOLUMAB
     Indication: Squamous cell carcinoma of head and neck
     Dosage: 240 MILLIGRAM, NUMBER OF CYCLES: 39
     Route: 065
     Dates: start: 20190214, end: 20200924
  2. OPDIVO [Suspect]
     Active Substance: NIVOLUMAB
     Dosage: 39 MULTIPLIED 240MG, 15 MULTIPLIED 480MG
     Route: 065
     Dates: start: 20190215
  3. OPDIVO [Suspect]
     Active Substance: NIVOLUMAB
     Dosage: 480 MILLIGRAM NUMBER OF CYCLES 15
     Route: 065
     Dates: start: 20201020

REACTIONS (7)
  - Hyperthyroidism [Unknown]
  - Goitre [Unknown]
  - Staphylococcal bacteraemia [Unknown]
  - Vascular device infection [Unknown]
  - Hypothyroidism [Unknown]
  - Dysphagia [Unknown]
  - Prescribed overdose [Unknown]

NARRATIVE: CASE EVENT DATE: 20200124
